FAERS Safety Report 5490715-9 (Version None)
Quarter: 2007Q4

REPORT INFORMATION
  Report Type: 
  Country: None (occurrence: None)
  Receive Date: 20071019
  Receipt Date: 20071018
  Transmission Date: 20080405
  Serious: Yes (Other)
  Sender: FDA-Public Use
  Company Number: A0686708A

PATIENT
  Age: 81 Year
  Sex: Male

DRUGS (10)
  1. COREG [Suspect]
     Indication: DRUG USE FOR UNKNOWN INDICATION
     Route: 048
  2. PACERONE [Suspect]
     Indication: VENTRICULAR FIBRILLATION
     Dosage: 200MG PER DAY
     Route: 048
     Dates: start: 20070403
  3. LASIX [Suspect]
     Dosage: 40MG TWICE PER DAY
     Route: 048
     Dates: end: 20070901
  4. ZOCOR [Concomitant]
  5. ASPIRIN [Concomitant]
  6. COUMADIN [Concomitant]
  7. LISINOPRIL [Concomitant]
  8. ALDACTONE [Concomitant]
     Dates: end: 20070901
  9. POTASSIUM CHLORIDE [Concomitant]
     Dates: end: 20070901
  10. VITAMIN [Concomitant]
     Dates: end: 20070901

REACTIONS (10)
  - DIZZINESS [None]
  - FATIGUE [None]
  - HEADACHE [None]
  - HYPOTENSION [None]
  - MYALGIA [None]
  - OVERDOSE [None]
  - SOMNOLENCE [None]
  - THIRST [None]
  - VENTRICULAR FIBRILLATION [None]
  - VISUAL DISTURBANCE [None]
